FAERS Safety Report 24257812 (Version 1)
Quarter: 2024Q3

REPORT INFORMATION
  Report Type: Spontaneous
  Country: IN (occurrence: IN)
  Receive Date: 20240828
  Receipt Date: 20240828
  Transmission Date: 20241017
  Serious: Yes (Other)
  Sender: GRANULES INDIA
  Company Number: IN-GRANULES-IN-2024GRALIT00372

PATIENT
  Age: 5 Month
  Sex: Female

DRUGS (8)
  1. ACETAMINOPHEN [Suspect]
     Active Substance: ACETAMINOPHEN
     Indication: Pyrexia
     Route: 065
     Dates: start: 20221101, end: 20221103
  2. ACETAMINOPHEN [Suspect]
     Active Substance: ACETAMINOPHEN
     Indication: Cough
  3. AZITHROMYCIN [Suspect]
     Active Substance: AZITHROMYCIN
     Indication: Pyrexia
     Route: 065
     Dates: start: 20221101, end: 20221103
  4. AZITHROMYCIN [Suspect]
     Active Substance: AZITHROMYCIN
     Indication: Cough
  5. SIMETHICONE (DIMETHICONE) [Concomitant]
     Active Substance: DIMETHICONE
     Indication: Pyrexia
     Route: 065
     Dates: start: 20221101, end: 20221103
  6. SIMETHICONE (DIMETHICONE) [Concomitant]
     Active Substance: DIMETHICONE
     Indication: Cough
  7. AMBROXOL ACEFYLLINATE;GUAIFENESIN;TERBUTALINE [Concomitant]
     Indication: Pyrexia
     Dosage: 15 MG + 1.25 MG + 50 MG
     Route: 065
     Dates: start: 20221101, end: 20221103
  8. AMBROXOL ACEFYLLINATE;GUAIFENESIN;TERBUTALINE [Concomitant]
     Indication: Cough

REACTIONS (2)
  - Toxic epidermal necrolysis [Recovered/Resolved]
  - Product use in unapproved indication [Unknown]

NARRATIVE: CASE EVENT DATE: 20221101
